FAERS Safety Report 9658233 (Version 1)
Quarter: 2013Q4

REPORT INFORMATION
  Report Type: Spontaneous
  Country: US (occurrence: US)
  Receive Date: 20131030
  Receipt Date: 20131030
  Transmission Date: 20140711
  Serious: No
  Sender: FDA-Public Use
  Company Number: US-PURDUE-USA-2012-0081908

PATIENT
  Sex: Male

DRUGS (3)
  1. OXYCONTIN (NDA 22-272) [Suspect]
     Indication: PAIN
     Dosage: 80 MG,  AM
  2. OXYCONTIN (NDA 22-272) [Suspect]
     Dosage: 80 MG,  PM
  3. ROXICODONE [Concomitant]
     Indication: BREAKTHROUGH PAIN
     Dosage: 30 MG, TAKING ABOUT 7 TABS DAILY,UNK

REACTIONS (3)
  - Abnormal faeces [Unknown]
  - Breakthrough pain [Unknown]
  - Drug effect decreased [Unknown]
